FAERS Safety Report 7044978-9 (Version None)
Quarter: 2010Q3

REPORT INFORMATION
  Report Type: 
  Country: None (occurrence: None)
  Receive Date: 20100929
  Receipt Date: 20100624
  Transmission Date: 20110219
  Serious: No
  Sender: FDA-Public Use
  Company Number: US-WYE-H15879910

PATIENT
  Age: 38 Year
  Sex: Male
  Weight: 81.72 kg

DRUGS (4)
  1. PRISTIQ [Suspect]
     Indication: DEPRESSION
     Dosage: 50 MG 1X PER 1 DAY, ORAL
     Route: 048
     Dates: start: 20100617
  2. ADVIL [Suspect]
     Indication: PAIN
     Dosage: 800 MG DAILY
  3. ACETAMINOPHEN [Suspect]
     Indication: HEADACHE
     Dosage: 500 MG 4X PER 1 DAY, ORAL
     Route: 048
  4. REMICADE [Concomitant]

REACTIONS (1)
  - SOMNOLENCE [None]
